FAERS Safety Report 7509736-7 (Version None)
Quarter: 2011Q2

REPORT INFORMATION
  Report Type: 
  Country: None (occurrence: None)
  Receive Date: 20110527
  Receipt Date: 20110520
  Transmission Date: 20111010
  Serious: Yes (Hospitalization, Disabling, Other)
  Sender: FDA-Public Use
  Company Number: US-JNJFOC-20100904231

PATIENT
  Sex: Male
  Weight: 95.26 kg

DRUGS (29)
  1. LEVAQUIN [Suspect]
     Indication: SINUSITIS
     Route: 048
     Dates: start: 20020430
  2. DIOVAN [Concomitant]
     Dates: start: 20070927, end: 20070927
  3. LEVAQUIN [Suspect]
     Route: 048
     Dates: start: 20050414, end: 20050428
  4. ADDERALL 10 [Concomitant]
     Indication: ATTENTION DEFICIT/HYPERACTIVITY DISORDER
     Route: 048
     Dates: start: 20000101
  5. CLARITHROMYCIN [Concomitant]
     Indication: ILL-DEFINED DISORDER
     Dates: start: 20070927, end: 20070928
  6. ATENOLOL [Concomitant]
     Indication: ILL-DEFINED DISORDER
     Dates: start: 20071222, end: 20071222
  7. LEVAQUIN [Suspect]
     Route: 048
     Dates: start: 20070911, end: 20070925
  8. LEVAQUIN [Suspect]
     Route: 048
     Dates: start: 20060808, end: 20060822
  9. LEVAQUIN [Suspect]
     Route: 048
     Dates: start: 20060726, end: 20060808
  10. LEVAQUIN [Suspect]
     Route: 048
     Dates: start: 20060712, end: 20060726
  11. LEVAQUIN [Suspect]
     Route: 048
     Dates: start: 20040915, end: 20040925
  12. LEVAQUIN [Suspect]
     Route: 048
     Dates: start: 20020226
  13. BUPROPION HCL [Concomitant]
     Indication: ILL-DEFINED DISORDER
     Dates: start: 20050330, end: 20050427
  14. KETEK [Concomitant]
     Indication: ILL-DEFINED DISORDER
     Dates: start: 20050405, end: 20050406
  15. EPIPEN [Concomitant]
     Indication: ILL-DEFINED DISORDER
     Dates: start: 20100406, end: 20100406
  16. INDAPAMIDE [Concomitant]
     Indication: ILL-DEFINED DISORDER
     Dates: start: 20050124, end: 20050427
  17. FENTANYL [Concomitant]
     Indication: ILL-DEFINED DISORDER
     Dates: start: 20070828, end: 20070828
  18. LEVAQUIN [Suspect]
     Route: 048
     Dates: start: 20071211, end: 20071221
  19. HYDROCODONE BITARTRATE [Concomitant]
     Indication: ILL-DEFINED DISORDER
     Dates: start: 20050510, end: 20050510
  20. LEVAQUIN [Suspect]
     Route: 048
     Dates: start: 20060606, end: 20060616
  21. LEXAPRO [Concomitant]
     Indication: ILL-DEFINED DISORDER
     Dates: start: 20050124, end: 20050427
  22. ANDRODERM [Concomitant]
     Indication: ILL-DEFINED DISORDER
     Dates: start: 20070927, end: 20070927
  23. HYDROCODONE BITARTRATE [Concomitant]
     Dates: start: 20071211, end: 20071211
  24. AMOXICILLIN [Concomitant]
     Indication: ILL-DEFINED DISORDER
     Dates: start: 20050510, end: 20050510
  25. LOTREL [Concomitant]
     Indication: ILL-DEFINED DISORDER
     Dates: start: 20050124, end: 20050427
  26. HYDROCODONE BITARTRATE [Concomitant]
     Dates: start: 20070924, end: 20070924
  27. COTRIM [Concomitant]
     Indication: ILL-DEFINED DISORDER
     Dates: start: 20070911, end: 20070911
  28. ALL OTHER THERAPEUTIC PRODUCT [Concomitant]
     Indication: ILL-DEFINED DISORDER
     Dates: start: 20070927, end: 20070928
  29. FINASTERIDE [Concomitant]
     Indication: ILL-DEFINED DISORDER
     Dates: start: 20071211, end: 20071211

REACTIONS (17)
  - OSTEOARTHRITIS [None]
  - JOINT EFFUSION [None]
  - ARTHRALGIA [None]
  - GLUCOSE TOLERANCE IMPAIRED [None]
  - TENDON RUPTURE [None]
  - JOINT INJURY [None]
  - HYPERTENSION [None]
  - CARPAL TUNNEL SYNDROME [None]
  - MUSCULOSKELETAL PAIN [None]
  - BACK PAIN [None]
  - ROTATOR CUFF SYNDROME [None]
  - MUSCLE RUPTURE [None]
  - TENDONITIS [None]
  - BURSITIS [None]
  - DYSLIPIDAEMIA [None]
  - DEPRESSION [None]
  - TENDON PAIN [None]
